FAERS Safety Report 22336879 (Version 1)
Quarter: 2023Q2

REPORT INFORMATION
  Report Type: Spontaneous
  Country: BE (occurrence: BE)
  Receive Date: 20230518
  Receipt Date: 20230518
  Transmission Date: 20230721
  Serious: Yes (Other)
  Sender: FDA-Public Use
  Company Number: BE-ALKEM LABORATORIES LIMITED-BE-ALKEM-2023-01124

PATIENT
  Sex: Male

DRUGS (8)
  1. AMPHETAMINE SULFATE [Suspect]
     Active Substance: AMPHETAMINE SULFATE
     Indication: Product used for unknown indication
     Dosage: UNK
     Route: 065
  2. BENZOYLECGONINE [Suspect]
     Active Substance: BENZOYLECGONINE
     Indication: Product used for unknown indication
     Dosage: UNK
     Route: 065
  3. COCAINE [Suspect]
     Active Substance: COCAINE
     Indication: Product used for unknown indication
     Dosage: UNK
     Route: 065
  4. FLUBROMAZEPAM [Suspect]
     Active Substance: FLUBROMAZEPAM
     Indication: Product used for unknown indication
     Dosage: UNK
     Route: 065
  5. ECGONINE METHYL ESTER [Suspect]
     Active Substance: ECGONINE METHYL ESTER
     Indication: Product used for unknown indication
     Dosage: UNK
     Route: 065
  6. 4-METHYLETHCATHINONE [Suspect]
     Active Substance: 4-METHYLETHCATHINONE
     Indication: Product used for unknown indication
     Dosage: UNK
     Route: 065
  7. TENAMFETAMINE [Suspect]
     Active Substance: TENAMFETAMINE
     Indication: Product used for unknown indication
     Dosage: UNK
     Route: 065
  8. MIDOMAFETAMINE [Suspect]
     Active Substance: MIDOMAFETAMINE
     Indication: Product used for unknown indication
     Dosage: UNK
     Route: 065

REACTIONS (7)
  - Drug abuse [Unknown]
  - Confusional state [Unknown]
  - Disorientation [Unknown]
  - Impaired driving ability [Unknown]
  - Road traffic accident [Unknown]
  - Gait disturbance [Unknown]
  - Balance disorder [Unknown]
